FAERS Safety Report 21659428 (Version 2)
Quarter: 2023Q2

REPORT INFORMATION
  Report Type: Report from Study
  Country: GB (occurrence: GB)
  Receive Date: 20221129
  Receipt Date: 20230401
  Transmission Date: 20230722
  Serious: Yes (Hospitalization)
  Sender: FDA-Public Use
  Company Number: GB-JNJFOC-20221125006

PATIENT
  Age: 60 Year
  Sex: Female

DRUGS (2)
  1. IBRUTINIB [Suspect]
     Active Substance: IBRUTINIB
     Indication: Chronic lymphocytic leukaemia
     Dosage: AS PER PROTOCOL
     Route: 048
     Dates: start: 20170105, end: 20221108
  2. RITUXIMAB [Concomitant]
     Active Substance: RITUXIMAB
     Indication: Chronic lymphocytic leukaemia
     Route: 042
     Dates: start: 20170106, end: 20170525

REACTIONS (1)
  - Splenic haemorrhage [Not Recovered/Not Resolved]

NARRATIVE: CASE EVENT DATE: 20221108
